FAERS Safety Report 4999348-1 (Version None)
Quarter: 2006Q2

REPORT INFORMATION
  Report Type: 
  Country: None (occurrence: None)
  Receive Date: 20060509
  Receipt Date: 20060509
  Transmission Date: 20061013
  Serious: Yes (Hospitalization)
  Sender: FDA-Public Use
  Company Number: None

PATIENT
  Age: 43 Year
  Sex: Female

DRUGS (3)
  1. FLUTICASONE/SALMETEROL [Suspect]
     Indication: ASTHMA
     Dosage: 250/50    PO  Q12    (DURATION: LONG TIME)
     Route: 048
  2. ALBUTEROL SULFATE AUTOHALER [Concomitant]
  3. MONTELUKAST [Concomitant]

REACTIONS (7)
  - CHILLS [None]
  - COUGH [None]
  - DRUG DOSE OMISSION [None]
  - DYSPNOEA [None]
  - DYSPNOEA EXERTIONAL [None]
  - PYREXIA [None]
  - WHEEZING [None]
